FAERS Safety Report 10213940 (Version 1)
Quarter: 2014Q2

REPORT INFORMATION
  Report Type: Spontaneous
  Country: US (occurrence: None)
  Receive Date: 20140602
  Receipt Date: 20140602
  Transmission Date: 20141212
  Serious: Yes (Other)
  Sender: FDA-Public Use
  Company Number: None

PATIENT
  Age: 56 Year
  Sex: Female
  Weight: 74.84 kg

DRUGS (1)
  1. AMBIEN 10 MG GENERIC [Suspect]
     Indication: INSOMNIA
     Route: 048

REACTIONS (5)
  - Insomnia [None]
  - Trance [None]
  - Somnambulism [None]
  - Incorrect dose administered [None]
  - Abnormal behaviour [None]
